FAERS Safety Report 8037869-8 (Version None)
Quarter: 2012Q1

REPORT INFORMATION
  Report Type: 
  Country: None (occurrence: None)
  Receive Date: 20120111
  Receipt Date: 20120105
  Transmission Date: 20120608
  Serious: Yes (Other)
  Sender: FDA-Public Use
  Company Number: PHHY2012DE001884

PATIENT
  Age: 46 Year
  Sex: Male

DRUGS (9)
  1. CLOZAPINE [Interacting]
     Dosage: 350 MG/DAY
  2. PREGABALIN [Interacting]
     Dosage: 150 MG/DAY
  3. CLOZAPINE [Interacting]
     Dosage: 150 MG, TID
  4. PREGABALIN [Interacting]
     Dosage: 300 MG, BID
  5. AMISULPRIDE [Concomitant]
     Dosage: 1000 MG/DAY
  6. CLOZAPINE [Interacting]
     Dosage: 200 MG, BID
  7. CLOZAPINE [Suspect]
     Indication: SCHIZOPHRENIA, CATATONIC TYPE
     Dosage: 500 MG,/DAY
  8. PREGABALIN [Interacting]
     Dosage: 250 MG, TID
  9. MIRTAZAPINE [Concomitant]
     Dosage: 60 MG/DAY

REACTIONS (10)
  - DRUG INEFFECTIVE [None]
  - RESTLESSNESS [None]
  - DRUG INTERACTION [None]
  - ANTIPSYCHOTIC DRUG LEVEL INCREASED [None]
  - SEDATION [None]
  - THINKING ABNORMAL [None]
  - SOMNOLENCE [None]
  - ACUTE PSYCHOSIS [None]
  - PSYCHOMOTOR HYPERACTIVITY [None]
  - ANXIETY [None]
